FAERS Safety Report 7914428-6 (Version None)
Quarter: 2011Q4

REPORT INFORMATION
  Report Type: 
  Country: None (occurrence: None)
  Receive Date: 20111115
  Receipt Date: 20111108
  Transmission Date: 20120403
  Serious: Yes (Other)
  Sender: FDA-Public Use
  Company Number: CA-CELGENEUS-028-21880-11111347

PATIENT
  Sex: Male

DRUGS (13)
  1. CALCIUM PLUS MAGNESIUM [Concomitant]
     Route: 065
  2. VITAMIN B50 COMPLEX [Concomitant]
     Route: 065
  3. VITAMIN A [Concomitant]
     Route: 065
  4. SITAGLIPTIN [Concomitant]
     Route: 065
  5. LECITHIN [Concomitant]
     Route: 065
  6. ASPIRIN [Concomitant]
     Dosage: 81 MILLIGRAM
     Route: 065
  7. METFORMIN HCL [Concomitant]
     Route: 065
  8. VITAMIN D [Concomitant]
     Route: 065
  9. GLICLAZIDE [Concomitant]
     Route: 065
  10. RAMIPRIL [Concomitant]
     Route: 065
  11. RABEPRAZOLE SODIUM [Concomitant]
     Route: 065
  12. DEXAMETHASONE [Concomitant]
     Route: 065
  13. REVLIMID [Suspect]
     Indication: MULTIPLE MYELOMA
     Dosage: 25 MILLIGRAM
     Route: 048
     Dates: start: 20090328, end: 20111105

REACTIONS (5)
  - BLOOD POTASSIUM DECREASED [None]
  - DEMENTIA [None]
  - HAEMOGLOBIN DECREASED [None]
  - VITAMIN B12 DECREASED [None]
  - WEIGHT DECREASED [None]
